FAERS Safety Report 19954430 (Version 1)
Quarter: 2021Q4

REPORT INFORMATION
  Report Type: Other
  Country: US (occurrence: US)
  Receive Date: 20211013
  Receipt Date: 20211013
  Transmission Date: 20220303
  Serious: Yes (Life-Threatening, Other)
  Sender: FDA-Public Use
  Company Number: US-MERCK HEALTHCARE KGAA-9270864

PATIENT
  Age: 42 Year
  Sex: Female

DRUGS (1)
  1. AVELUMAB [Suspect]
     Active Substance: AVELUMAB
     Indication: Thymoma
     Route: 042

REACTIONS (9)
  - Coagulopathy [Recovering/Resolving]
  - Immune-mediated hepatitis [Recovering/Resolving]
  - Cytokine release syndrome [Recovering/Resolving]
  - Inappropriate antidiuretic hormone secretion [Recovering/Resolving]
  - Blepharitis [Recovering/Resolving]
  - Conjunctivitis [Recovering/Resolving]
  - Blood triglycerides increased [Recovering/Resolving]
  - Haemoglobin decreased [Recovering/Resolving]
  - Off label use [Unknown]
